FAERS Safety Report 22084741 (Version 1)
Quarter: 2023Q1

REPORT INFORMATION
  Report Type: Spontaneous
  Country: PT (occurrence: PT)
  Receive Date: 20230310
  Receipt Date: 20230310
  Transmission Date: 20230418
  Serious: Yes (Hospitalization, Other)
  Sender: FDA-Public Use
  Company Number: None

PATIENT
  Age: 85 Year
  Sex: Female

DRUGS (9)
  1. ENOXAPARIN SODIUM [Suspect]
     Active Substance: ENOXAPARIN SODIUM
     Indication: Product used for unknown indication
     Route: 065
  2. AMOXICILLIN\CLAVULANIC ACID [Concomitant]
     Active Substance: AMOXICILLIN\CLAVULANIC ACID
     Dosage: 1.2G FOR EVEERY 8 HOURS
     Route: 065
  3. AZITHROMYCIN [Concomitant]
     Active Substance: AZITHROMYCIN
     Dosage: ID
     Route: 065
  4. WARFARIN [Concomitant]
     Active Substance: WARFARIN
     Indication: Atrial fibrillation
     Route: 065
  5. AMIODARONE [Concomitant]
     Active Substance: AMIODARONE
     Indication: Atrial fibrillation
     Dosage: ID
     Route: 065
  6. LEVOTHYROXINE [Concomitant]
     Active Substance: LEVOTHYROXINE
     Indication: Hypothyroidism
     Dosage: ID
     Route: 065
  7. PRAVASTATIN [Concomitant]
     Active Substance: PRAVASTATIN
     Indication: Dyslipidaemia
     Dosage: ID
     Route: 065
  8. FUROSEMIDE [Concomitant]
     Active Substance: FUROSEMIDE
     Dosage: ID
     Route: 065
  9. METFORMIN [Concomitant]
     Active Substance: METFORMIN HYDROCHLORIDE
     Indication: Type 2 diabetes mellitus
     Dosage: ID
     Route: 065

REACTIONS (2)
  - Hypovolaemic shock [Recovered/Resolved]
  - Abdominal wall haematoma [Recovered/Resolved]
